FAERS Safety Report 4772348-2 (Version None)
Quarter: 2005Q3

REPORT INFORMATION
  Report Type: 
  Country: None (occurrence: None)
  Receive Date: 20050916
  Receipt Date: 20050904
  Transmission Date: 20060218
  Serious: Yes (Other)
  Sender: FDA-Public Use
  Company Number: 2005123788

PATIENT
  Age: 68 Year
  Sex: Female
  Weight: 90.7194 kg

DRUGS (1)
  1. LISTERINE ANTISEPTIC MOUTHWASH (MENTHOL, METHYL SALICYLATE, EUCALYPTOL [Suspect]
     Indication: ALCOHOL POISONING
     Dosage: 1.5 LITERS IN 2 DAYS, ORAL
     Route: 048
     Dates: start: 20050903, end: 20050904

REACTIONS (2)
  - ALCOHOL POISONING [None]
  - INTENTIONAL MISUSE [None]
